FAERS Safety Report 6066154-9 (Version None)
Quarter: 2009Q1

REPORT INFORMATION
  Report Type: 
  Country: None (occurrence: None)
  Receive Date: 20090130
  Receipt Date: 20090119
  Transmission Date: 20090719
  Serious: Yes (Life-Threatening)
  Sender: FDA-Public Use
  Company Number: DSA_33116_2009

PATIENT
  Sex: Female

DRUGS (5)
  1. NITOMAN TAB [Suspect]
     Indication: DYSKINESIA
     Dosage: 25 MG, TID; ORAL
     Route: 048
  2. MIRTAZAPINE [Concomitant]
  3. VENLAFAXINE HCL [Concomitant]
  4. LYRICA [Concomitant]
  5. TIAPRIDE [Concomitant]

REACTIONS (4)
  - ABNORMAL BEHAVIOUR [None]
  - PARANOIA [None]
  - SUICIDE ATTEMPT [None]
  - TENSION [None]
